FAERS Safety Report 24281158 (Version 1)
Quarter: 2024Q3

REPORT INFORMATION
  Report Type: Spontaneous
  Country: US (occurrence: US)
  Receive Date: 20240904
  Receipt Date: 20240904
  Transmission Date: 20241017
  Serious: Yes (Other)
  Sender: PFIZER
  Company Number: US-PFIZER INC-PV202400115331

PATIENT
  Age: 3 Year
  Sex: Male

DRUGS (3)
  1. SIROLIMUS [Suspect]
     Active Substance: SIROLIMUS
     Indication: Autoimmune lymphoproliferative syndrome
     Dosage: 2.3 MG/M2
  2. SIROLIMUS [Suspect]
     Active Substance: SIROLIMUS
     Dosage: 2.9 MG/M2
  3. SIROLIMUS [Suspect]
     Active Substance: SIROLIMUS
     Dosage: 3.6 MG/M2

REACTIONS (2)
  - Toxicity to various agents [Unknown]
  - Off label use [Unknown]
